FAERS Safety Report 20068053 (Version 1)
Quarter: 2021Q4

REPORT INFORMATION
  Report Type: Spontaneous
  Country: US (occurrence: None)
  Receive Date: 20211112
  Receipt Date: 20211112
  Transmission Date: 20220303
  Serious: No
  Sender: FDA-Public Use
  Company Number: None

PATIENT
  Age: 84 Year
  Sex: Female
  Weight: 92.2 kg

DRUGS (1)
  1. REGEN-COV [Suspect]
     Active Substance: CASIRIVIMAB\IMDEVIMAB
     Indication: COVID-19
     Dosage: FREQUENCY : ONCE;?
     Route: 040
     Dates: start: 20211112, end: 20211112

REACTIONS (6)
  - Pallor [None]
  - Feeling abnormal [None]
  - Infusion related reaction [None]
  - Blood pressure decreased [None]
  - Heart rate decreased [None]
  - Emotional distress [None]

NARRATIVE: CASE EVENT DATE: 20211112
